FAERS Safety Report 18603842 (Version 1)
Quarter: 2020Q4

REPORT INFORMATION
  Report Type: Spontaneous
  Country: US (occurrence: US)
  Receive Date: 20201211
  Receipt Date: 20201211
  Transmission Date: 20210114
  Serious: Yes (Hospitalization)
  Sender: FDA-Public Use
  Company Number: US-TEVA-2020-US-1857002

PATIENT
  Sex: Female
  Weight: 104 kg

DRUGS (18)
  1. ZANAFLEX [Concomitant]
     Active Substance: TIZANIDINE HYDROCHLORIDE
  2. PERCOCET [Concomitant]
     Active Substance: ACETAMINOPHEN\OXYCODONE HYDROCHLORIDE
     Dosage: 7.5-325MG
  3. ALBUTEROL SULFATE. [Concomitant]
     Active Substance: ALBUTEROL SULFATE
  4. SYMBICORT [Concomitant]
     Active Substance: BUDESONIDE\FORMOTEROL FUMARATE DIHYDRATE
     Dosage: 160-4.5MCG HFA AER AD
  5. PHENERGAN 25 MG/ML [Concomitant]
     Dosage: 25 MG/ML AMPUL
  6. POLYETHYLENE GLYCOL 300. [Concomitant]
     Active Substance: POLYETHYLENE GLYCOL 300
     Dosage: LIQUID
  7. ASPIRIN 81 MG [Concomitant]
     Active Substance: ASPIRIN
  8. DICYCLOMINE HCL 20 MG [Concomitant]
  9. ATORVASTATIN CALCIUM 10 MG [Concomitant]
  10. CITALOPRAM HBR 40 MG [Concomitant]
     Active Substance: CITALOPRAM HYDROBROMIDE
  11. AMLODIPINE BESYLATE. [Concomitant]
     Active Substance: AMLODIPINE BESYLATE
  12. AUSTEDO [Suspect]
     Active Substance: DEUTETRABENAZINE
     Indication: TARDIVE DYSKINESIA
     Dosage: 12 MILLIGRAM DAILY; FIRST SHIPPED: 16-JUL-2020
     Route: 048
  13. MAALOX ADVANCED [Concomitant]
     Dosage: 1000-60 MG TAB CHEW
  14. PROTONIX [Concomitant]
     Active Substance: PANTOPRAZOLE SODIUM
     Dosage: GRANPKT DR
  15. HYDROCORTISONE-ALOE 1 % CREAM(GM) [Concomitant]
  16. FLONASE ALLERGY RELIEF [Concomitant]
     Active Substance: FLUTICASONE PROPIONATE
  17. OXYGEN. [Concomitant]
     Active Substance: OXYGEN
  18. AMBIEN [Concomitant]
     Active Substance: ZOLPIDEM TARTRATE

REACTIONS (1)
  - COVID-19 [Not Recovered/Not Resolved]
